FAERS Safety Report 16318340 (Version 1)
Quarter: 2019Q2

REPORT INFORMATION
  Report Type: Spontaneous
  Country: IT (occurrence: IT)
  Receive Date: 20190516
  Receipt Date: 20190516
  Transmission Date: 20190711
  Serious: Yes (Other)
  Sender: FDA-Public Use
  Company Number: IT-AUROBINDO-AUR-APL-2019-025644

PATIENT

DRUGS (1)
  1. ACICLOVIR ORAL SUSPENSION [Suspect]
     Active Substance: ACYCLOVIR
     Indication: HERPES OPHTHALMIC
     Dosage: 17 MILLILITER, ONCE A DAY
     Route: 048
     Dates: start: 20180603, end: 20180603

REACTIONS (2)
  - Tremor [Recovered/Resolved]
  - Haematemesis [Recovered/Resolved]

NARRATIVE: CASE EVENT DATE: 20180603
